FAERS Safety Report 7910692-8 (Version None)
Quarter: 2011Q4

REPORT INFORMATION
  Report Type: 
  Country: None (occurrence: None)
  Receive Date: 20111111
  Receipt Date: 20111028
  Transmission Date: 20120403
  Serious: Yes (Hospitalization)
  Sender: FDA-Public Use
  Company Number: US-ROCHE-656703

PATIENT
  Sex: Male
  Weight: 72.7 kg

DRUGS (58)
  1. ACTEMRA [Suspect]
     Indication: RHEUMATOID ARTHRITIS
     Dosage: LAST DOSE PRIOR TO SAE: 19 APRIL 2010. DRUG TEMPORARILY DISCONTINUED
     Route: 042
     Dates: start: 20061204, end: 20100517
  2. LOPRESSOR [Concomitant]
     Dosage: 1 AS REQUIRED
     Route: 048
  3. MULTIVITAMIN NOS [Concomitant]
     Indication: MEDICAL DIET
     Route: 048
     Dates: start: 20090813, end: 20090814
  4. COREG [Concomitant]
     Indication: HYPERTENSION
     Dosage: FREQUENCY: QD
     Route: 048
     Dates: start: 20090813, end: 20090814
  5. NITROGLYCERIN [Concomitant]
     Route: 061
     Dates: start: 20100518, end: 20100520
  6. VASOTEC [Concomitant]
     Route: 048
     Dates: start: 20100928, end: 20101004
  7. ZESTRIL [Concomitant]
     Indication: ATRIOVENTRICULAR BLOCK COMPLETE
     Route: 048
     Dates: start: 20100518, end: 20100520
  8. LASIX [Concomitant]
     Route: 048
     Dates: start: 20101005, end: 20101008
  9. DOBUTAMINE HCL [Concomitant]
     Indication: CARDIAC FAILURE CONGESTIVE
     Dosage: ONE TIME
     Route: 042
     Dates: start: 20100929, end: 20100929
  10. LOPRESSOR [Concomitant]
     Indication: HYPERTENSION
     Route: 048
     Dates: start: 20080817, end: 20090813
  11. COREG [Concomitant]
     Route: 048
     Dates: start: 20100927, end: 20100927
  12. VERSED [Concomitant]
     Indication: CARDIAC PACEMAKER INSERTION
     Route: 042
     Dates: start: 20100518, end: 20100518
  13. ACETAMINOPHEN [Concomitant]
     Indication: CARDIAC PACEMAKER INSERTION
     Dates: start: 20100518, end: 20100519
  14. LEVEMIR [Concomitant]
     Indication: DIABETES MELLITUS
     Dosage: 20 UNITS ONE TIME
     Dates: start: 20100927, end: 20100927
  15. ACTEMRA [Suspect]
     Dosage: LAST DOSE PRIOR TO SAE: 7 SEP 2010
     Route: 042
     Dates: start: 20100614, end: 20101004
  16. GARLIC [Concomitant]
     Indication: MEDICAL DIET
  17. SPIRIVA [Concomitant]
     Dosage: 1 AS REQUIERD
     Route: 055
  18. PLAVIX [Concomitant]
     Dosage: FREQUENCY: QD
     Route: 048
     Dates: start: 20090813, end: 20090814
  19. FUROSEMIDE [Concomitant]
     Indication: FLUID RETENTION
     Dosage: FREQUENCY: QD
     Route: 048
     Dates: start: 20060501, end: 20060611
  20. ANCEF [Concomitant]
     Indication: PROPHYLAXIS
     Route: 042
  21. LASIX [Concomitant]
     Indication: CARDIAC FAILURE CONGESTIVE
     Route: 042
     Dates: start: 20100927, end: 20100927
  22. ALDACTONE [Concomitant]
     Indication: CARDIAC FAILURE CONGESTIVE
     Route: 048
     Dates: start: 20100928, end: 20100928
  23. LISINOPRIL AND HYDROCHLOROTHIAZIDE [Concomitant]
     Dosage: FREQUENCY: QD
     Route: 048
     Dates: start: 20090812, end: 20090813
  24. FUROSEMIDE [Concomitant]
     Dosage: FREQUENCY: QD
     Route: 048
     Dates: start: 20060612, end: 20060713
  25. AMARYL [Concomitant]
     Indication: DIABETES MELLITUS
     Dosage: FREQUENCY: QD
     Route: 048
     Dates: start: 20060401, end: 20071201
  26. LOVENOX [Concomitant]
     Indication: THROMBOSIS PROPHYLAXIS
     Dosage: FREQUENCY: DAILY
     Route: 048
     Dates: start: 20090810, end: 20090812
  27. LOPRESSOR [Concomitant]
     Route: 048
     Dates: start: 20100518, end: 20100520
  28. VITAMIN D [Concomitant]
     Indication: MEDICAL DIET
  29. HYDRALAZINE HCL [Concomitant]
     Indication: CARDIAC PACEMAKER INSERTION
     Route: 042
     Dates: start: 20100518, end: 20100518
  30. ACTEMRA [Suspect]
     Dosage: PATIENT PREVIOUSLY ENROLLED IN WA17824
     Route: 065
  31. SPIRIVA [Concomitant]
     Indication: DYSPNOEA
     Dosage: FREQUENCY: QD
     Route: 055
     Dates: start: 20060713, end: 20071201
  32. FUROSEMIDE [Concomitant]
     Dosage: FREQUENCY: QD
     Route: 048
     Dates: start: 20060714, end: 20071201
  33. LISINOPRIL AND HYDROCHLOROTHIAZIDE [Concomitant]
     Dosage: FREQUENCY: QD
     Route: 048
     Dates: start: 20100518, end: 20100520
  34. NOVOLOG [Concomitant]
     Indication: DIABETES MELLITUS
     Dosage: DOSE: 2 UNITS ONE TIME
     Dates: start: 20090813, end: 20090813
  35. NORVASC [Concomitant]
     Indication: HYPERTENSION
     Dosage: AS REQUIRED
     Route: 048
  36. VASOTEC [Concomitant]
     Indication: CARDIAC FAILURE CONGESTIVE
     Route: 048
     Dates: start: 20100927, end: 20100927
  37. EFFEXOR [Concomitant]
     Route: 048
  38. PROTONIX [Concomitant]
     Route: 048
     Dates: start: 20100928
  39. BUMEX [Concomitant]
     Indication: FLUID RETENTION
     Dosage: AS PER REQUIRED
     Route: 048
  40. CIPROFLOXACIN [Concomitant]
     Route: 048
     Dates: start: 20110711
  41. ACTEMRA [Suspect]
     Dosage: LAST DOSE PRIOR TO SAE: 03 OCTOBER 2011
     Route: 042
  42. ASCORBIC ACID [Concomitant]
  43. LISINOPRIL AND HYDROCHLOROTHIAZIDE [Concomitant]
     Indication: HYPERTENSION
     Route: 048
     Dates: start: 20060401, end: 20080201
  44. LISINOPRIL AND HYDROCHLOROTHIAZIDE [Concomitant]
     Dosage: DOSE REPORTED: 1 TAB PRN
     Route: 048
     Dates: start: 20080326, end: 20100615
  45. PLAVIX [Concomitant]
     Indication: CORONARY ARTERIAL STENT INSERTION
     Dosage: FREQUENCY: QD
     Route: 048
     Dates: start: 20060513, end: 20071201
  46. METFORMIN HCL [Concomitant]
     Indication: DIABETES MELLITUS
     Route: 048
     Dates: start: 20060401, end: 20060904
  47. POTASSIUM CHLORIDE [Concomitant]
     Indication: FLUID RETENTION
     Dosage: FREQUENCY: QD
     Route: 048
     Dates: start: 20060501, end: 20060713
  48. POTASSIUM CHLORIDE [Concomitant]
     Dosage: FREQUENCY: QD
     Route: 048
     Dates: start: 20060714, end: 20071201
  49. IMDUR [Concomitant]
     Indication: HYPERTENSION
     Route: 048
  50. IMDUR [Concomitant]
     Route: 048
     Dates: start: 20100520, end: 20100520
  51. LASIX [Concomitant]
     Route: 042
     Dates: start: 20100929, end: 20101004
  52. PEPCID [Concomitant]
     Indication: PROPHYLAXIS
     Route: 048
     Dates: start: 20080812, end: 20090814
  53. NORVASC [Concomitant]
     Dosage: FREQUENCY: QD
     Route: 048
     Dates: start: 20100518, end: 20100520
  54. BACITRACIN [Concomitant]
     Indication: CARDIAC PACEMAKER INSERTION
     Dosage: DOSE: 5000 UNITS ONE TIME
     Route: 061
     Dates: start: 20100518, end: 20100518
  55. LANOXIN [Concomitant]
     Indication: CARDIAC FAILURE CONGESTIVE
     Route: 048
     Dates: start: 20100928, end: 20100928
  56. LASIX [Concomitant]
     Route: 042
     Dates: start: 20100928, end: 20100928
  57. CIPROFLOXACIN [Concomitant]
     Indication: URINARY TRACT INFECTION
     Dosage: ONE TIME DOSE
     Route: 048
     Dates: start: 20110708, end: 20110713
  58. DUONEB [Concomitant]
     Indication: DYSPNOEA
     Dosage: 1 UNIT DOSE

REACTIONS (3)
  - ATRIOVENTRICULAR BLOCK COMPLETE [None]
  - CARDIAC FAILURE CONGESTIVE [None]
  - ANGINA PECTORIS [None]
